FAERS Safety Report 23713909 (Version 1)
Quarter: 2024Q2

REPORT INFORMATION
  Report Type: Spontaneous
  Country: US (occurrence: US)
  Receive Date: 20240405
  Receipt Date: 20240405
  Transmission Date: 20240715
  Serious: Yes (Other)
  Sender: FDA-Public Use
  Company Number: US-VER-202400139

PATIENT
  Sex: Male

DRUGS (1)
  1. TLANDO [Suspect]
     Active Substance: TESTOSTERONE UNDECANOATE
     Indication: Product used for unknown indication
     Route: 048

REACTIONS (2)
  - Suicidal ideation [Unknown]
  - Product dose omission issue [Unknown]
